FAERS Safety Report 10783179 (Version 1)
Quarter: 2015Q1

REPORT INFORMATION
  Report Type: Spontaneous
  Country: US (occurrence: US)
  Receive Date: 20150210
  Receipt Date: 20150210
  Transmission Date: 20150721
  Serious: No
  Sender: FDA-Public Use
  Company Number: US-GLAXOSMITHKLINE-A1064286A

PATIENT

DRUGS (1)
  1. NICORETTE FRESH MINT [Suspect]
     Active Substance: NICOTINE
     Indication: TOBACCO ABUSE
     Dates: start: 20140304, end: 20140309

REACTIONS (11)
  - Irritability [Recovering/Resolving]
  - Anxiety [Recovering/Resolving]
  - Condition aggravated [Recovering/Resolving]
  - Fatigue [Recovering/Resolving]
  - Poor quality sleep [Recovering/Resolving]
  - Drug administration error [Recovering/Resolving]
  - Sleep disorder [Recovering/Resolving]
  - Insomnia [Recovering/Resolving]
  - Formication [Not Recovered/Not Resolved]
  - Overdose [Recovering/Resolving]
  - Confusional state [Recovering/Resolving]

NARRATIVE: CASE EVENT DATE: 20140307
